FAERS Safety Report 5797049-3 (Version None)
Quarter: 2008Q2

REPORT INFORMATION
  Report Type: 
  Country: None (occurrence: None)
  Receive Date: 20080618
  Receipt Date: 20071204
  Transmission Date: 20081010
  Serious: Yes (Other)
  Sender: FDA-Public Use
  Company Number: 200716536US

PATIENT
  Age: 77 Year
  Sex: Male
  Weight: 81.81 kg

DRUGS (10)
  1. LANTUS [Suspect]
     Indication: TYPE 2 DIABETES MELLITUS
     Dosage: 37 U HS INJ
     Route: 042
  2. HUMALOG [Suspect]
  3. AMLODIPINE [Concomitant]
  4. ATENOLOL [Concomitant]
  5. VALSARTAN (DIOVANE) [Concomitant]
  6. OMEPRAZOLE [Concomitant]
  7. TERAZOSIN HCL [Concomitant]
  8. RANITIDINE [Concomitant]
  9. SIMVASTATIN [Concomitant]
  10. ASPIRIN [Concomitant]

REACTIONS (5)
  - BLOOD GLUCOSE INCREASED [None]
  - DIZZINESS [None]
  - HYPOGLYCAEMIA [None]
  - INJECTION SITE HAEMORRHAGE [None]
  - WRONG DRUG ADMINISTERED [None]
